FAERS Safety Report 22101344 (Version 1)
Quarter: 2023Q1

REPORT INFORMATION
  Report Type: Spontaneous
  Country: US (occurrence: US)
  Receive Date: 20230316
  Receipt Date: 20230316
  Transmission Date: 20230417
  Serious: Yes (Hospitalization, Other)
  Sender: FDA-Public Use
  Company Number: US-CATALYSTPHARMACEUTICALPARTNERS-2020-51

PATIENT
  Age: 51 Year
  Sex: Female

DRUGS (9)
  1. RUZURGI [Suspect]
     Active Substance: AMIFAMPRIDINE
     Indication: Myasthenic syndrome
     Dosage: 15 MILLIGRAM, QID
     Route: 048
  2. RUZURGI [Suspect]
     Active Substance: AMIFAMPRIDINE
     Dosage: 10 MILLIGRAM, TID
     Route: 048
  3. RUZURGI [Suspect]
     Active Substance: AMIFAMPRIDINE
     Dosage: 20 MILLIGRAM, QID
     Route: 048
     Dates: start: 20190911
  4. MESTINON [Suspect]
     Active Substance: PYRIDOSTIGMINE BROMIDE
     Indication: Product used for unknown indication
     Dosage: 60 MILLIGRAM, TID
     Route: 065
  5. SYNTHROID [Concomitant]
     Active Substance: LEVOTHYROXINE SODIUM
     Indication: Product used for unknown indication
     Dosage: UNK
  6. ESTRADIOL [Concomitant]
     Active Substance: ESTRADIOL
     Indication: Product used for unknown indication
     Dosage: UNK
  7. TOPAMAX [Concomitant]
     Active Substance: TOPIRAMATE
     Indication: Migraine
     Dosage: UNK
  8. NORTRIPTYLINE [Concomitant]
     Active Substance: NORTRIPTYLINE
     Indication: Product used for unknown indication
     Dosage: UNK
  9. HUMAN IMMUNOGLOBULIN G [Concomitant]
     Active Substance: HUMAN IMMUNOGLOBULIN G
     Indication: Product used for unknown indication
     Dosage: UNK

REACTIONS (9)
  - Hypertension [Recovered/Resolved]
  - Heart rate increased [Recovered/Resolved]
  - Patellofemoral pain syndrome [Unknown]
  - Loss of consciousness [Recovered/Resolved]
  - Syncope [Not Recovered/Not Resolved]
  - Muscle spasms [Not Recovered/Not Resolved]
  - Trigeminal nerve disorder [Recovered/Resolved]
  - Speech disorder [Recovered/Resolved]
  - Delirium [Recovered/Resolved]

NARRATIVE: CASE EVENT DATE: 20200319
